FAERS Safety Report 22129990 (Version 1)
Quarter: 2023Q1

REPORT INFORMATION
  Report Type: Spontaneous
  Country: US (occurrence: None)
  Receive Date: 20230322
  Receipt Date: 20230322
  Transmission Date: 20230418
  Serious: Yes (Hospitalization)
  Sender: FDA-Public Use
  Company Number: None

PATIENT
  Age: 36 Year
  Sex: Male
  Weight: 67.5 kg

DRUGS (1)
  1. CLARITHROMYCIN [Suspect]
     Active Substance: CLARITHROMYCIN
     Indication: Sinusitis
     Dosage: FREQUENCY : EVERY 12 HOURS;?
     Route: 048
     Dates: start: 20230314, end: 20230322

REACTIONS (10)
  - Palpitations [None]
  - Hypertension [None]
  - Chest pain [None]
  - Back pain [None]
  - Chest discomfort [None]
  - Ageusia [None]
  - Insomnia [None]
  - Night sweats [None]
  - Anxiety [None]
  - Arrhythmia [None]

NARRATIVE: CASE EVENT DATE: 20230320
